FAERS Safety Report 13950086 (Version 1)
Quarter: 2017Q3

REPORT INFORMATION
  Report Type: Spontaneous
  Country: US (occurrence: US)
  Receive Date: 20170908
  Receipt Date: 20170908
  Transmission Date: 20171128
  Serious: No
  Sender: FDA-Public Use
  Company Number: US-ROCHE-1134766

PATIENT
  Sex: Male

DRUGS (13)
  1. TYLENOL [Concomitant]
     Active Substance: ACETAMINOPHEN
     Route: 048
     Dates: start: 20000519
  2. RITUXAN [Suspect]
     Active Substance: RITUXIMAB
     Dosage: 800 MG IN 800 CC OF NORMAL SALINE
     Route: 042
     Dates: start: 20000705
  3. BENADRYL [Concomitant]
     Active Substance: DIPHENHYDRAMINE HYDROCHLORIDE
     Route: 048
     Dates: start: 20000705
  4. PREDNISONE. [Concomitant]
     Active Substance: PREDNISONE
  5. TYLENOL [Concomitant]
     Active Substance: ACETAMINOPHEN
     Route: 048
     Dates: start: 20000705
  6. HYDROCORTISONE NOS [Concomitant]
     Route: 042
     Dates: start: 20000519
  7. RITUXAN [Suspect]
     Active Substance: RITUXIMAB
     Indication: NON-HODGKIN^S LYMPHOMA
     Dosage: 800 MG IN 800 CC OF NORMAL SALINE
     Route: 042
     Dates: start: 20000519
  8. HYDROXYDAUNORUBICIN [Concomitant]
     Active Substance: DOXORUBICIN
  9. CYCLOPHOSPHAMIDE. [Concomitant]
     Active Substance: CYCLOPHOSPHAMIDE
  10. BENADRYL [Concomitant]
     Active Substance: DIPHENHYDRAMINE HYDROCHLORIDE
     Route: 048
     Dates: start: 20000519
  11. BENADRYL [Concomitant]
     Active Substance: DIPHENHYDRAMINE HYDROCHLORIDE
     Dosage: 25 MG IN 100 CC OF NORMAL SALINE
     Route: 042
     Dates: start: 20000519
  12. ONCOVIN [Concomitant]
     Active Substance: VINCRISTINE SULFATE
  13. BENADRYL [Concomitant]
     Active Substance: DIPHENHYDRAMINE HYDROCHLORIDE
     Route: 042
     Dates: start: 20000519

REACTIONS (2)
  - Nausea [Unknown]
  - Abdominal discomfort [Unknown]
